FAERS Safety Report 15265448 (Version 8)
Quarter: 2018Q4

REPORT INFORMATION
  Report Type: Spontaneous
  Country: BR (occurrence: BR)
  Receive Date: 20180810
  Receipt Date: 20181219
  Transmission Date: 20190204
  Serious: Yes (Hospitalization, Other)
  Sender: FDA-Public Use
  Company Number: BR-ALEXION-A201809593

PATIENT
  Age: 17 Year
  Sex: Female
  Weight: 39 kg

DRUGS (8)
  1. PHENYTOIN. [Concomitant]
     Active Substance: PHENYTOIN
     Indication: SEIZURE
     Dosage: UNK
     Route: 065
  2. CAPTOPRIL. [Concomitant]
     Active Substance: CAPTOPRIL
     Indication: BLOOD PRESSURE ABNORMAL
     Dosage: UNK
     Route: 065
  3. PHENYTOIN. [Concomitant]
     Active Substance: PHENYTOIN
     Indication: NERVOUS SYSTEM DISORDER
  4. AMIODARONE [Concomitant]
     Active Substance: AMIODARONE
     Indication: CARDIAC DISORDER
     Dosage: UNK
     Route: 065
  5. MAREVAN [Concomitant]
     Active Substance: WARFARIN SODIUM
     Indication: PRODUCT USED FOR UNKNOWN INDICATION
     Route: 065
  6. SOLIRIS [Suspect]
     Active Substance: ECULIZUMAB
     Indication: ATYPICAL HAEMOLYTIC URAEMIC SYNDROME
     Dosage: 900 MG EVERY 7 DAYS
     Route: 042
     Dates: start: 20180202, end: 20180224
  7. SOLIRIS [Suspect]
     Active Substance: ECULIZUMAB
     Dosage: 1200 MG EVERY 14 DAYS
     Route: 042
     Dates: start: 20180307
  8. CARVEDILOL. [Concomitant]
     Active Substance: CARVEDILOL
     Indication: BLOOD PRESSURE ABNORMAL
     Dosage: UNK
     Route: 065

REACTIONS (19)
  - Cholelithiasis [Recovered/Resolved]
  - Renal impairment [Unknown]
  - Blood pressure decreased [Recovered/Resolved]
  - Device related infection [Recovered/Resolved]
  - Pancreatitis [Recovered/Resolved]
  - Pain [Recovered/Resolved]
  - Arrhythmia [Recovered/Resolved]
  - Blood glucose decreased [Recovered/Resolved]
  - Malaise [Recovered/Resolved]
  - Cardiac valve vegetation [Unknown]
  - Abdominal pain [Recovered/Resolved]
  - Somnolence [Recovered/Resolved]
  - Thrombosis [Recovered/Resolved]
  - Cardiomegaly [Not Recovered/Not Resolved]
  - Tachycardia [Recovered/Resolved]
  - Paralysis [Unknown]
  - Vomiting [Recovered/Resolved]
  - Blood potassium increased [Unknown]
  - Inappropriate schedule of product administration [Recovered/Resolved]

NARRATIVE: CASE EVENT DATE: 20180717
